FAERS Safety Report 7156310-0 (Version None)
Quarter: 2010Q4

REPORT INFORMATION
  Report Type: 
  Country: None (occurrence: None)
  Receive Date: 20101130
  Receipt Date: 20101115
  Transmission Date: 20110411
  Serious: Yes (Hospitalization)
  Sender: FDA-Public Use
  Company Number: PIR#1011033

PATIENT
  Age: 45 Year
  Sex: Female

DRUGS (1)
  1. GENTAMICIN [Suspect]

REACTIONS (7)
  - ASTHENIA [None]
  - BODY TEMPERATURE DECREASED [None]
  - HYPOAESTHESIA [None]
  - MUSCLE SPASMS [None]
  - PSEUDO-BARTTER SYNDROME [None]
  - TETANY [None]
  - TREMOR [None]
